FAERS Safety Report 7144794-3 (Version None)
Quarter: 2010Q4

REPORT INFORMATION
  Report Type: 
  Country: None (occurrence: None)
  Receive Date: 20101112
  Receipt Date: 20101004
  Transmission Date: 20110411
  Serious: Yes (Other)
  Sender: FDA-Public Use
  Company Number: 1000016622

PATIENT
  Age: 58 Year
  Sex: Female
  Weight: 122.4 kg

DRUGS (2)
  1. SAVELLA [Suspect]
     Indication: FIBROMYALGIA
     Dosage: 100 MG (50 MG, 2 IN 1 D)
  2. ZOLPIDEM (ZOLPIDEM-) (ZOLPIDEM) [Concomitant]

REACTIONS (9)
  - ANGER [None]
  - CRYING [None]
  - DECREASED APPETITE [None]
  - FATIGUE [None]
  - HEADACHE [None]
  - HEART RATE INCREASED [None]
  - HYPERTENSION [None]
  - MUSCULOSKELETAL PAIN [None]
  - NECK PAIN [None]
